FAERS Safety Report 26125781 (Version 1)
Quarter: 2025Q4

REPORT INFORMATION
  Report Type: Spontaneous
  Country: CN (occurrence: CN)
  Receive Date: 20251205
  Receipt Date: 20251205
  Transmission Date: 20260118
  Serious: Yes (Hospitalization)
  Sender: PFIZER
  Company Number: CN-PFIZER INC-PV202500142552

PATIENT
  Age: 17 Month
  Sex: Male
  Weight: 10.5 kg

DRUGS (2)
  1. METHOTREXATE SODIUM [Suspect]
     Active Substance: METHOTREXATE SODIUM
     Indication: Acute lymphocytic leukaemia
     Dosage: 2.3 G, 1X/DAY
     Route: 041
     Dates: start: 20251111, end: 20251111
  2. SODIUM CHLORIDE [Concomitant]
     Active Substance: SODIUM CHLORIDE
     Indication: Vehicle solution use
     Dosage: 50 ML, 1X/DAY
     Route: 041
     Dates: start: 20251111, end: 20251111

REACTIONS (2)
  - Mouth ulceration [Recovering/Resolving]
  - Anal erosion [Recovering/Resolving]

NARRATIVE: CASE EVENT DATE: 20251120
